FAERS Safety Report 9515147 (Version 1)
Quarter: 2013Q1

REPORT INFORMATION
  Report Type: Spontaneous
  Country: US (occurrence: None)
  Receive Date: 20130305
  Receipt Date: 20130305
  Transmission Date: 20140127
  Serious: Yes (Hospitalization, Disabling)
  Sender: FDA-Public Use
  Company Number: 163-21880-12103614

PATIENT
  Age: 79 Year
  Sex: Female
  Weight: 54.43 kg

DRUGS (10)
  1. REVLIMID [Suspect]
     Indication: PLASMA CELL MYELOMA
     Route: 048
     Dates: start: 201001
  2. FERROUS SULFATE (FERROUS SULFATE) (UNKNOWN) [Concomitant]
  3. CALCIUM/VITAMIN D (CALCIUM D3 ^STADA^) (UNKNOWN)? [Concomitant]
  4. LORTAB (VICODIN) (UNKNOWN) [Concomitant]
  5. ASPIRIN (ACETYLSALICYLIC ACID) (UNKNOWN) (ACETYLSALICYLIC ACID) [Concomitant]
  6. LOTRIMIN (CLOTRIMAZOLE) (SOLUTION) [Concomitant]
  7. NEURONTIN (GABAPENTIN) (UNKNOWN) [Concomitant]
  8. POTASSIUM (POTASSIUM) (UNKNOWN) [Concomitant]
  9. PREMARIN (ESTROGENS CONJUGATED ) (UNKNOWN) [Concomitant]
  10. VITAMIN D (ERGOCALCIFEROL) (UNKNOWN) [Concomitant]

REACTIONS (1)
  - Femoral neck fracture [None]
